FAERS Safety Report 16903852 (Version 1)
Quarter: 2019Q4

REPORT INFORMATION
  Report Type: Spontaneous
  Country: BE (occurrence: BE)
  Receive Date: 20191010
  Receipt Date: 20191010
  Transmission Date: 20200122
  Serious: Yes (Other)
  Sender: FDA-Public Use
  Company Number: BE-SA-2019SA273954

PATIENT
  Sex: Female

DRUGS (12)
  1. TRANXENE [Suspect]
     Active Substance: CLORAZEPATE DIPOTASSIUM
     Indication: INSOMNIA
     Dosage: SINCE SHE WAS 22, THE PATIENT TOOK SUCCESSIVELY MOGADON, TEMESTA, ROHYPNOL, LORAMET, STILNOCT, TRANX
     Route: 065
  2. LORMETAZEPAM [Suspect]
     Active Substance: LORMETAZEPAM
     Indication: INSOMNIA
     Dosage: SINCE SHE WAS 22, THE PATIENT TOOK SUCCESSIVELY MOGADON, TEMESTA, ROHYPNOL, LORAMET, STILNOCT, TRANX
     Route: 065
  3. ZYPREXA [Concomitant]
     Active Substance: OLANZAPINE
     Dosage: UNK
  4. NITRAZEPAM [Suspect]
     Active Substance: NITRAZEPAM
     Indication: INSOMNIA
     Dosage: SINCE SHE WAS 22, THE PATIENT TOOK SUCCESSIVELY MOGADON, TEMESTA, ROHYPNOL, LORAMET, STILNOCT, TRANX
     Route: 065
  5. LORAZEPAM. [Suspect]
     Active Substance: LORAZEPAM
     Indication: INSOMNIA
     Dosage: SINCE SHE WAS 22, THE PATIENT TOOK SUCCESSIVELY MOGADON, TEMESTA, ROHYPNOL, LORAMET, STILNOCT, TRANX
     Route: 065
  6. ZOLPIDEM TARTRATE. [Suspect]
     Active Substance: ZOLPIDEM TARTRATE
     Indication: INSOMNIA
     Dosage: SINCE SHE WAS 22, THE PATIENT TOOK SUCCESSIVELY MOGADON, TEMESTA, ROHYPNOL, LORAMET, STILNOCT, TRANX
     Route: 065
  7. PROLOPA [Concomitant]
     Active Substance: BENSERAZIDE\LEVODOPA
     Dosage: UNK
  8. ROHYPNOL [Suspect]
     Active Substance: FLUNITRAZEPAM
     Indication: INSOMNIA
     Dosage: SINCE SHE WAS 22, THE PATIENT TOOK SUCCESSIVELY MOGADON, TEMESTA, ROHYPNOL, LORAMET, STILNOCT, TRANX
     Route: 065
  9. DEANXIT [Concomitant]
     Active Substance: FLUPENTIXOL DIHYDROCHLORIDE\MELITRACEN HYDROCHLORIDE
     Indication: DEPRESSION
     Dosage: UNK
  10. FLUANXOL [FLUPENTIXOL DECANOATE] [Concomitant]
     Active Substance: FLUPENTIXOL DECANOATE
     Dosage: UNK
     Route: 065
  11. STILNOCT [Suspect]
     Active Substance: ZOLPIDEM TARTRATE
     Indication: INSOMNIA
     Dosage: SINCE SHE WAS 22, THE PATIENT TOOK SUCCESSIVELY MOGADON, TEMESTA, ROHYPNOL, LORAMET, STILNOCT, TRANX
     Route: 065
  12. PAROXETINE HYDROCHLORIDE. [Suspect]
     Active Substance: PAROXETINE HYDROCHLORIDE
     Indication: DEPRESSION
     Dosage: UNK UNK, UNK
     Route: 065

REACTIONS (8)
  - Parkinson^s disease [Recovered/Resolved]
  - Aphasia [Unknown]
  - Social avoidant behaviour [Recovered/Resolved]
  - Depression [Recovered/Resolved]
  - Memory impairment [Unknown]
  - Presenile dementia [Recovered/Resolved]
  - Anxiety [Recovered/Resolved]
  - Suicidal ideation [Recovered/Resolved]
